FAERS Safety Report 8941300 (Version 1)
Quarter: 2012Q4

REPORT INFORMATION
  Report Type: 
  Country: CA (occurrence: CA)
  Receive Date: 20121203
  Receipt Date: 20121203
  Transmission Date: 20130627
  Serious: Yes (Hospitalization, Other)
  Sender: FDA-Public Use
  Company Number: CA-BAYER-2012-121816

PATIENT
  Age: 82 Year
  Sex: Male

DRUGS (9)
  1. ADALAT XL [Suspect]
  2. ASPIRIN [Suspect]
     Route: 048
  3. PLAVIX [Suspect]
     Route: 048
  4. STUDY DRUG (UNSPECIFIED) [Suspect]
     Dosage: UNK
     Route: 042
  5. ATORVASTATIN CALCIUM [Concomitant]
  6. HEPARIN SODIUM [Concomitant]
     Route: 042
  7. LASIX [Concomitant]
  8. METOPROLOL [Concomitant]
  9. PERINDOPRIL [Concomitant]

REACTIONS (2)
  - Diverticulum intestinal haemorrhagic [None]
  - Lower gastrointestinal haemorrhage [None]
